FAERS Safety Report 6394938-6 (Version None)
Quarter: 2009Q4

REPORT INFORMATION
  Report Type: 
  Country: None (occurrence: None)
  Receive Date: 20091009
  Receipt Date: 20090928
  Transmission Date: 20100525
  Serious: Yes (Other)
  Sender: FDA-Public Use
  Company Number: IT-PFIZER INC-2009275295

PATIENT
  Age: 75 Year

DRUGS (1)
  1. ORELOX [Suspect]
     Indication: URINARY TRACT INFECTION
     Dosage: 400 MG
     Route: 048
     Dates: start: 20090902, end: 20090908

REACTIONS (2)
  - DIARRHOEA HAEMORRHAGIC [None]
  - MUCOUS STOOLS [None]
